FAERS Safety Report 25246130 (Version 1)
Quarter: 2025Q2

REPORT INFORMATION
  Report Type: Spontaneous
  Country: US (occurrence: None)
  Receive Date: 20250428
  Receipt Date: 20250428
  Transmission Date: 20250716
  Serious: Yes (Hospitalization)
  Sender: FDA-CTU
  Company Number: None

PATIENT
  Age: 68 Year
  Sex: Female

DRUGS (4)
  1. MAYZENT [Suspect]
     Active Substance: SIPONIMOD
     Indication: Multiple sclerosis
     Dosage: TAKE 1 TABLET BY MOUTH EVERY DAY?
     Route: 048
     Dates: start: 20191016
  2. CALCIUM\VITAMIN D [Concomitant]
     Active Substance: CALCIUM\VITAMIN D
  3. MULTIVITAMIN TAB ADLT 50+ [Concomitant]
  4. VIT D3 HP [Concomitant]

REACTIONS (4)
  - Cellulitis [None]
  - Fall [None]
  - Mobility decreased [None]
  - Intentional dose omission [None]

NARRATIVE: CASE EVENT DATE: 20250401
